FAERS Safety Report 4975000-3 (Version None)
Quarter: 2006Q2

REPORT INFORMATION
  Report Type: 
  Country: None (occurrence: None)
  Receive Date: 20060418
  Receipt Date: 20060410
  Transmission Date: 20061013
  Serious: Yes (Other)
  Sender: FDA-Public Use
  Company Number: 2006AP01729

PATIENT
  Age: 12386 Day
  Sex: Male

DRUGS (7)
  1. FOSCAVIR [Suspect]
     Indication: CYTOMEGALOVIRUS ENTEROCOLITIS
     Route: 042
     Dates: start: 20011220, end: 20020109
  2. FOSCAVIR [Suspect]
     Route: 042
     Dates: start: 20020110, end: 20020208
  3. STOCRIN [Suspect]
     Indication: HIV INFECTION
     Route: 048
     Dates: start: 20011126, end: 20020222
  4. EPIVIR [Concomitant]
     Indication: HIV INFECTION
     Route: 048
     Dates: start: 20011126, end: 20020222
  5. ZERIT [Concomitant]
     Indication: HIV INFECTION
     Route: 048
     Dates: start: 20011126, end: 20020222
  6. BAKTAR [Concomitant]
     Indication: PNEUMOCYSTIS JIROVECI PNEUMONIA
     Route: 048
     Dates: start: 20011211, end: 20020215
  7. BAKTAR [Concomitant]
     Route: 048
     Dates: start: 20011211, end: 20020215

REACTIONS (5)
  - ALANINE AMINOTRANSFERASE INCREASED [None]
  - ASPARTATE AMINOTRANSFERASE INCREASED [None]
  - BLOOD ALKALINE PHOSPHATASE INCREASED [None]
  - HEPATIC FUNCTION ABNORMAL [None]
  - LIVER DISORDER [None]
